FAERS Safety Report 4472262-6 (Version None)
Quarter: 2004Q4

REPORT INFORMATION
  Report Type: 
  Country: None (occurrence: None)
  Receive Date: 20041012
  Receipt Date: 20041006
  Transmission Date: 20050328
  Serious: Yes (Other)
  Sender: FDA-Public Use
  Company Number: US-MERCK-0410USA01210

PATIENT
  Sex: Male

DRUGS (1)
  1. VIOXX [Suspect]
     Route: 065

REACTIONS (2)
  - BLINDNESS [None]
  - CEREBROVASCULAR ACCIDENT [None]
